FAERS Safety Report 6421064-X (Version None)
Quarter: 2009Q4

REPORT INFORMATION
  Report Type: 
  Country: None (occurrence: None)
  Receive Date: 20091030
  Receipt Date: 20091028
  Transmission Date: 20100525
  Serious: Yes (Death)
  Sender: FDA-Public Use
  Company Number: AU-RB-023364-09

PATIENT
  Age: 29 Year
  Sex: Male

DRUGS (5)
  1. SUBOXONE [Suspect]
     Route: 060
     Dates: start: 20090401, end: 20091003
  2. AROPAX [Concomitant]
     Indication: DEPRESSION
     Route: 065
  3. IMOVANE [Suspect]
     Indication: INSOMNIA
     Route: 065
     Dates: start: 20090401, end: 20091003
  4. ALCOHOL [Suspect]
     Indication: DRUG USE FOR UNKNOWN INDICATION
     Dosage: REPORTED MODERATE CONSUMPTION
     Dates: end: 20091003
  5. ZYPREXA [Suspect]
     Indication: INSOMNIA
     Dosage: 5 MG DAILY AS REQUIRED
     Route: 065
     Dates: start: 20090401, end: 20091003

REACTIONS (3)
  - COMPLETED SUICIDE [None]
  - FATIGUE [None]
  - IRRITABILITY [None]
